FAERS Safety Report 9143631 (Version 1)
Quarter: 2013Q1

REPORT INFORMATION
  Report Type: Spontaneous
  Country: BR (occurrence: BR)
  Receive Date: 20130306
  Receipt Date: 20130306
  Transmission Date: 20140127
  Serious: Yes (Other)
  Sender: FDA-Public Use
  Company Number: BR-JNJFOC-20130300034

PATIENT
  Sex: Male
  Weight: 73 kg

DRUGS (1)
  1. NICORETTE ICE MINT [Suspect]
     Indication: SMOKING CESSATION THERAPY
     Route: 048
     Dates: start: 2007

REACTIONS (3)
  - Nicotine dependence [Not Recovered/Not Resolved]
  - Intentional drug misuse [Unknown]
  - Dyspepsia [Unknown]
